FAERS Safety Report 9038167 (Version 1)
Quarter: 2013Q1

REPORT INFORMATION
  Report Type: Spontaneous
  Country: US (occurrence: US)
  Receive Date: 20130129
  Receipt Date: 20130129
  Transmission Date: 20140127
  Serious: No
  Sender: FDA-Public Use
  Company Number: US-GLAXOSMITHKLINE-A0972777A

PATIENT
  Sex: Female

DRUGS (2)
  1. WELLBUTRIN [Suspect]
     Indication: PRODUCT USED FOR UNKNOWN INDICATION
     Route: 065
  2. SAPHRIS [Suspect]
     Indication: BIPOLAR DISORDER
     Dosage: 10MG PER DAY
     Route: 060
     Dates: start: 2011

REACTIONS (3)
  - Drug interaction [Unknown]
  - Dyskinesia [Unknown]
  - Inappropriate schedule of drug administration [Unknown]
